FAERS Safety Report 16857597 (Version 1)
Quarter: 2019Q3

REPORT INFORMATION
  Report Type: Spontaneous
  Country: US (occurrence: US)
  Receive Date: 20190926
  Receipt Date: 20190926
  Transmission Date: 20191005
  Serious: Yes (Other)
  Sender: FDA-Public Use
  Company Number: US-PFIZER INC-2019163552

PATIENT
  Age: 67 Year
  Sex: Female

DRUGS (1)
  1. LYRICA [Suspect]
     Active Substance: PREGABALIN
     Dosage: 100 MG, QID
     Route: 048

REACTIONS (4)
  - Neuropathy peripheral [Unknown]
  - Fall [Unknown]
  - Ankle fracture [Unknown]
  - Pain [Unknown]
